FAERS Safety Report 9883303 (Version 2)
Quarter: 2014Q1

REPORT INFORMATION
  Report Type: Report from Study
  Country: US (occurrence: US)
  Receive Date: 20140210
  Receipt Date: 20140210
  Transmission Date: 20141002
  Serious: Yes (Other)
  Sender: FDA-Public Use
  Company Number: US-ABBVIE-14P-163-1186414-00

PATIENT
  Sex: Male
  Weight: 65.83 kg

DRUGS (13)
  1. HUMIRA [Suspect]
     Indication: RHEUMATOID ARTHRITIS
     Route: 058
     Dates: start: 20130611, end: 20130807
  2. HUMIRA [Suspect]
  3. TAMSULOSIN [Concomitant]
     Indication: BENIGN PROSTATIC HYPERPLASIA
  4. LIPITOR [Concomitant]
     Indication: HYPERCHOLESTEROLAEMIA
  5. LEVOTHYROXINE [Concomitant]
     Indication: HYPOTHYROIDISM
  6. ETODOLAC [Concomitant]
     Indication: RHEUMATOID ARTHRITIS
  7. PANTOPRAZOLE [Concomitant]
     Indication: GASTROOESOPHAGEAL REFLUX DISEASE
  8. ZANTAC [Concomitant]
     Indication: GASTROOESOPHAGEAL REFLUX DISEASE
  9. LIPITOR [Concomitant]
     Indication: BLOOD CHOLESTEROL INCREASED
  10. ASPIRIN [Concomitant]
     Indication: PROPHYLAXIS
  11. ARAVA [Concomitant]
     Indication: RHEUMATOID ARTHRITIS
     Dates: start: 20130910, end: 20130927
  12. ARAVA [Concomitant]
     Dates: start: 20130927
  13. ARAVA [Concomitant]

REACTIONS (7)
  - Spinal column stenosis [Not Recovered/Not Resolved]
  - Areflexia [Not Recovered/Not Resolved]
  - Muscular weakness [Not Recovered/Not Resolved]
  - Pain [Not Recovered/Not Resolved]
  - Mobility decreased [Not Recovered/Not Resolved]
  - Neurodermatitis [Not Recovered/Not Resolved]
  - Arthralgia [Recovering/Resolving]
